FAERS Safety Report 13614615 (Version 8)
Quarter: 2018Q1

REPORT INFORMATION
  Report Type: Spontaneous
  Country: JP (occurrence: JP)
  Receive Date: 20170606
  Receipt Date: 20180226
  Transmission Date: 20180508
  Serious: Yes (Death, Other)
  Sender: FDA-Public Use
  Company Number: JP-009507513-1706JPN000108J

PATIENT
  Sex: Male
  Weight: 62 kg

DRUGS (5)
  1. KEYTRUDA [Suspect]
     Active Substance: PEMBROLIZUMAB
     Indication: LUNG ADENOCARCINOMA
     Dosage: 200 MG, Q3W
     Route: 041
     Dates: start: 20170529, end: 20170529
  2. FENTOS [Concomitant]
     Active Substance: FENTANYL
     Indication: LUNG ADENOCARCINOMA
     Dosage: 3.0 MG, QD
     Route: 061
     Dates: end: 20170530
  3. ZOSYN [Concomitant]
     Active Substance: PIPERACILLIN SODIUM\TAZOBACTAM SODIUM
     Indication: LUNG ADENOCARCINOMA
     Dosage: 4.5 G, QD
     Route: 065
     Dates: end: 20170601
  4. VERAPAMIL HCL [Concomitant]
     Active Substance: VERAPAMIL HYDROCHLORIDE
     Indication: LUNG ADENOCARCINOMA
     Dosage: 1.0 DF, QD
     Route: 065
     Dates: start: 20170530, end: 20170601
  5. BISONO [Concomitant]
     Active Substance: BISOPROLOL
     Indication: PROPHYLAXIS
     Dosage: 4.0 MG, QD
     Route: 061
     Dates: end: 20170601

REACTIONS (1)
  - Malignant neoplasm progression [Fatal]
